FAERS Safety Report 8890462 (Version 3)
Quarter: 2013Q1

REPORT INFORMATION
  Report Type: Spontaneous
  Country: US (occurrence: US)
  Receive Date: 20121107
  Receipt Date: 20130326
  Transmission Date: 20140127
  Serious: Yes (Other)
  Sender: FDA-Public Use
  Company Number: PHEH2012US021838

PATIENT
  Age: 36 Year
  Sex: Female
  Weight: 50.79 kg

DRUGS (1)
  1. GILENYA [Suspect]
     Indication: MULTIPLE SCLEROSIS
     Dosage: 0.5 MG, QD
     Route: 048
     Dates: start: 20120416

REACTIONS (4)
  - Dyslexia [Unknown]
  - Hand fracture [Recovered/Resolved]
  - Fall [Recovered/Resolved]
  - Cognitive disorder [Unknown]
